FAERS Safety Report 8908155 (Version 1)
Quarter: 2012Q4

REPORT INFORMATION
  Report Type: 
  Country: AU (occurrence: AU)
  Receive Date: 20121113
  Receipt Date: 20121113
  Transmission Date: 20130627
  Serious: Yes (Other)
  Sender: FDA-Public Use
  Company Number: AU-WATSON-2012-19628

PATIENT
  Age: 49 Year
  Sex: Female

DRUGS (4)
  1. CARBOPLATIN [Suspect]
     Indication: BREAST CANCER
     Dosage: UNK
     Route: 065
  2. DOCETAXEL [Concomitant]
     Indication: BREAST CANCER
     Dosage: 75 mg/m2, unknown
     Route: 065
  3. TRASTUZUMAB [Concomitant]
     Indication: BREAST CANCER
     Dosage: 8 mg/kg, single
  4. TRASTUZUMAB [Concomitant]
     Dosage: 6mg/kg every 3 weeks

REACTIONS (1)
  - Inappropriate antidiuretic hormone secretion [Recovered/Resolved]
